FAERS Safety Report 5967657-5 (Version None)
Quarter: 2008Q4

REPORT INFORMATION
  Report Type: 
  Country: None (occurrence: None)
  Receive Date: 20081126
  Receipt Date: 20081119
  Transmission Date: 20090506
  Serious: Yes (Death, Hospitalization, Other)
  Sender: FDA-Public Use
  Company Number: PHHY2008JP17484

PATIENT
  Sex: Female
  Weight: 50 kg

DRUGS (18)
  1. AREDIA [Suspect]
     Indication: BREAST CANCER METASTATIC
     Dosage: UNK
     Route: 041
     Dates: start: 20000417, end: 20040213
  2. AREDIA [Suspect]
     Dosage: UNK
     Route: 041
     Dates: start: 20050426, end: 20051004
  3. ENDOXAN [Concomitant]
     Dosage: UNK
     Route: 048
     Dates: start: 19970201
  4. FURTULON [Concomitant]
     Dosage: UNK
     Route: 048
     Dates: start: 19970201, end: 20031201
  5. FURTULON [Concomitant]
     Route: 048
  6. FLUOROURACIL [Concomitant]
     Dosage: UNK
     Route: 048
     Dates: start: 19970201
  7. NOLVADEX [Concomitant]
     Dosage: UNK
     Route: 048
     Dates: start: 19970801, end: 19991114
  8. FARESTON [Concomitant]
     Dosage: UNK
     Route: 048
     Dates: start: 19991201, end: 19991209
  9. AFEMA [Concomitant]
     Dosage: UNK
     Route: 048
     Dates: start: 20000117, end: 20010715
  10. ARIMIDEX [Concomitant]
     Dosage: UNK
     Route: 048
     Dates: start: 20010716, end: 20020720
  11. TAXOTERE [Concomitant]
     Dosage: UNK
     Route: 042
     Dates: start: 20020201, end: 20031201
  12. XELODA [Concomitant]
     Dosage: UNK
     Route: 048
     Dates: start: 20031001, end: 20051101
  13. ARTIST [Concomitant]
     Route: 048
  14. CIBENOL [Concomitant]
     Route: 048
  15. ASPIRIN [Concomitant]
     Route: 048
  16. LAC B [Concomitant]
     Route: 048
  17. SELBEX [Concomitant]
     Route: 048
  18. MOBIC [Concomitant]
     Route: 048

REACTIONS (14)
  - ABSCESS JAW [None]
  - BONE DISORDER [None]
  - FISTULA [None]
  - IMPAIRED HEALING [None]
  - JAW LESION EXCISION [None]
  - MALIGNANT NEOPLASM PROGRESSION [None]
  - METASTASES TO BONE [None]
  - METASTASES TO LIVER [None]
  - METASTASES TO LYMPH NODES [None]
  - MOUTH ULCERATION [None]
  - ORAL PAIN [None]
  - OSTEONECROSIS [None]
  - PATHOLOGICAL FRACTURE [None]
  - TOOTH EXTRACTION [None]
